FAERS Safety Report 11159286 (Version 1)
Quarter: 2015Q2

REPORT INFORMATION
  Report Type: Report from Study
  Country: FR (occurrence: FR)
  Receive Date: 20150603
  Receipt Date: 20150603
  Transmission Date: 20150821
  Serious: Yes (Hospitalization)
  Sender: FDA-Public Use
  Company Number: FR-GLAXOSMITHKLINE-FR2015GSK075530

PATIENT
  Age: 44 Year
  Sex: Male

DRUGS (11)
  1. ASPEGIC [Concomitant]
     Active Substance: ASPIRIN DL-LYSINE
  2. LOVENOX [Concomitant]
     Active Substance: ENOXAPARIN SODIUM
  3. TAHOR [Concomitant]
     Active Substance: ATORVASTATIN CALCIUM
  4. LEVEMIR [Concomitant]
     Active Substance: INSULIN DETEMIR
  5. KARDEGIC [Concomitant]
     Active Substance: ASPIRIN LYSINE
  6. PLAVIX [Concomitant]
     Active Substance: CLOPIDOGREL BISULFATE
  7. OMEGA-3-ACID ETHYL ESTERS. [Suspect]
     Active Substance: OMEGA-3-ACID ETHYL ESTERS
     Indication: ISCHAEMIC HEART DISEASE PROPHYLAXIS
     Dosage: UNK
     Dates: start: 20081112, end: 20141108
  8. TENORMIN [Concomitant]
     Active Substance: ATENOLOL
  9. TRIATEC [Concomitant]
     Active Substance: RAMIPRIL
  10. ODRIK [Concomitant]
     Active Substance: TRANDOLAPRIL
  11. CRESTOR [Concomitant]
     Active Substance: ROSUVASTATIN CALCIUM

REACTIONS (1)
  - Anxiety [Unknown]

NARRATIVE: CASE EVENT DATE: 20090730
